FAERS Safety Report 17846537 (Version 1)
Quarter: 2020Q2

REPORT INFORMATION
  Report Type: Spontaneous
  Country: US (occurrence: US)
  Receive Date: 20200601
  Receipt Date: 20200601
  Transmission Date: 20200714
  Serious: No
  Sender: FDA-Public Use
  Company Number: None

PATIENT
  Age: 61 Year
  Sex: Male
  Weight: 74.25 kg

DRUGS (6)
  1. GABAPENTIN. [Concomitant]
     Active Substance: GABAPENTIN
  2. VERAPAMIL [Concomitant]
     Active Substance: VERAPAMIL HYDROCHLORIDE
  3. LITHIUM CARBONATE. [Concomitant]
     Active Substance: LITHIUM CARBONATE
  4. CALCITRIOL OINTMENT [Concomitant]
  5. ALIEVE [Concomitant]
  6. SUMATRIPTAN INJECTION USP AUTOINJECTOR 6MG/0.5ML [Suspect]
     Active Substance: SUMATRIPTAN SUCCINATE
     Indication: CLUSTER HEADACHE
     Dosage: ?          QUANTITY:18 INJECTION(S);?
     Route: 058
     Dates: start: 20200523, end: 20200527

REACTIONS (2)
  - Device delivery system issue [None]
  - Injection site pain [None]

NARRATIVE: CASE EVENT DATE: 20200527
